FAERS Safety Report 13667778 (Version 1)
Quarter: 2017Q2

REPORT INFORMATION
  Report Type: Report from Study
  Country: US (occurrence: US)
  Receive Date: 20170620
  Receipt Date: 20170620
  Transmission Date: 20170830
  Serious: Yes (Other)
  Sender: FDA-Public Use
  Company Number: US-GILEAD-2017-0273805

PATIENT
  Age: 10 Year
  Sex: Male

DRUGS (24)
  1. REGLAN [Concomitant]
     Active Substance: METOCLOPRAMIDE HYDROCHLORIDE
  2. TYLENOL EXTRA STRENGTH [Concomitant]
     Active Substance: ACETAMINOPHEN
  3. VITAMIN D3 [Concomitant]
     Active Substance: CHOLECALCIFEROL
  4. PROBIOTIC                          /06395501/ [Concomitant]
     Active Substance: BIFIDOBACTERIUM ANIMALIS SUBSP. LACTIS
  5. REMODULIN [Concomitant]
     Active Substance: TREPROSTINIL
  6. FLONASE                            /00908302/ [Concomitant]
     Active Substance: MOMETASONE FUROATE
  7. ZANTAC [Concomitant]
     Active Substance: RANITIDINE HYDROCHLORIDE
  8. ASPIRIN                            /00002701/ [Concomitant]
     Active Substance: ASPIRIN
  9. LOTRIMIN AF                        /00212501/ [Concomitant]
  10. BENADRYL [Concomitant]
     Active Substance: DIPHENHYDRAMINE HYDROCHLORIDE
  11. PREVACID [Concomitant]
     Active Substance: LANSOPRAZOLE
  12. ZYRTEC [Concomitant]
     Active Substance: CETIRIZINE HYDROCHLORIDE
  13. MULTIVITAMIN                       /00097801/ [Concomitant]
     Active Substance: VITAMINS
  14. AMBRISENTAN [Suspect]
     Active Substance: AMBRISENTAN
     Indication: PULMONARY ARTERIAL HYPERTENSION
     Dosage: 5 MG, QD
     Route: 065
     Dates: start: 20161110
  15. COLOSTRUM [Concomitant]
  16. IRON [Concomitant]
     Active Substance: IRON
  17. OXYGEN. [Concomitant]
     Active Substance: OXYGEN
  18. MOTRIN IB [Concomitant]
     Active Substance: IBUPROFEN
  19. ADCIRCA [Concomitant]
     Active Substance: TADALAFIL
  20. KEFLEX [Concomitant]
     Active Substance: CEPHALEXIN
  21. ALBUTEROL                          /00139501/ [Concomitant]
     Active Substance: ALBUTEROL
  22. PULMICORT TURBUHALER [Concomitant]
     Active Substance: BUDESONIDE
  23. LASIX [Concomitant]
     Active Substance: FUROSEMIDE
  24. DYMISTA [Concomitant]
     Active Substance: AZELASTINE HYDROCHLORIDE\FLUTICASONE PROPIONATE

REACTIONS (3)
  - Off label use [Not Recovered/Not Resolved]
  - Pulmonary valve incompetence [Not Recovered/Not Resolved]
  - Dyspnoea exertional [Not Recovered/Not Resolved]

NARRATIVE: CASE EVENT DATE: 20161110
